FAERS Safety Report 7353567 (Version 19)
Quarter: 2016Q3

REPORT INFORMATION
  Report Type: Report from Study
  Country: CA (occurrence: CA)
  Receive Date: 20100413
  Receipt Date: 20160724
  Transmission Date: 20161109
  Serious: Yes (Other)
  Sender: FDA-Public Use
  Company Number: PHHY2010CA07391

PATIENT
  Age: 68 Year
  Sex: Male

DRUGS (1)
  1. SANDOSTATIN LAR DEPOT [Suspect]
     Active Substance: OCTREOTIDE ACETATE
     Indication: ACROMEGALY
     Dosage: 20 MG, QMO (EVERY 4 WEEKS/EVERY 28 DAYS)
     Route: 030
     Dates: start: 20040105

REACTIONS (23)
  - Weight decreased [Unknown]
  - Limb injury [Unknown]
  - Blood pressure systolic increased [Unknown]
  - Heart rate increased [Unknown]
  - Fatigue [Unknown]
  - Pneumonia [Unknown]
  - Cough [Unknown]
  - Aortic aneurysm [Unknown]
  - Splinter [Unknown]
  - Swelling [Recovering/Resolving]
  - Toothache [Unknown]
  - Sluggishness [Unknown]
  - Sialoadenitis [Unknown]
  - Subcutaneous abscess [Unknown]
  - Lower respiratory tract infection [Unknown]
  - Pain [Recovering/Resolving]
  - Infection [Unknown]
  - Diabetes mellitus [Unknown]
  - Nasopharyngitis [Unknown]
  - Body temperature decreased [Unknown]
  - Heart rate irregular [Unknown]
  - Haematoma [Unknown]
  - Malaise [Unknown]

NARRATIVE: CASE EVENT DATE: 20130115
